FAERS Safety Report 15320726 (Version 1)
Quarter: 2018Q3

REPORT INFORMATION
  Report Type: Spontaneous
  Country: FR (occurrence: FR)
  Receive Date: 20180827
  Receipt Date: 20180827
  Transmission Date: 20181010
  Serious: Yes (Hospitalization)
  Sender: FDA-Public Use
  Company Number: PHHY2018FR077073

PATIENT
  Age: 31 Year
  Sex: Male
  Weight: 50 kg

DRUGS (4)
  1. TERCIAN [Suspect]
     Active Substance: CYAMEMAZINE
     Indication: TRISOMY 21
     Dosage: 50 MG, QD
     Route: 048
  2. DEPAKOTE [Concomitant]
     Active Substance: DIVALPROEX SODIUM
     Indication: TRISOMY 21
     Dosage: 500 MG, QD
     Route: 048
  3. LEVOTHYROX [Concomitant]
     Active Substance: LEVOTHYROXINE
     Indication: HYPOTHYROIDISM
     Dosage: 150 UG, QD
     Route: 065
  4. OLANZAPINE. [Suspect]
     Active Substance: OLANZAPINE
     Indication: TRISOMY 21
     Dosage: 10 MG, QD
     Route: 048
     Dates: end: 20180621

REACTIONS (2)
  - Type 1 diabetes mellitus [Not Recovered/Not Resolved]
  - Diabetic ketoacidosis [Recovering/Resolving]

NARRATIVE: CASE EVENT DATE: 20180615
